FAERS Safety Report 15044059 (Version 1)
Quarter: 2018Q2

REPORT INFORMATION
  Report Type: Spontaneous
  Country: GB (occurrence: GB)
  Receive Date: 20180621
  Receipt Date: 20180621
  Transmission Date: 20180711
  Serious: Yes (Disabling)
  Sender: FDA-Public Use
  Company Number: GB-MYLANLABS-2018M1041500

PATIENT
  Age: 60 Year
  Sex: Female

DRUGS (2)
  1. NAPROXEN. [Suspect]
     Active Substance: NAPROXEN
     Indication: RHEUMATOID ARTHRITIS
     Dosage: UNK
  2. LANSOPRAZOLE. [Suspect]
     Active Substance: LANSOPRAZOLE
     Indication: ABDOMINAL DISCOMFORT
     Dosage: STRENGTH: 30 MG
     Route: 048
     Dates: start: 20180121

REACTIONS (6)
  - Erythema [Unknown]
  - Urticaria [Unknown]
  - Abdominal discomfort [Unknown]
  - Arthralgia [Unknown]
  - Off label use [Unknown]
  - Muscle disorder [Unknown]
